FAERS Safety Report 4954764-9 (Version None)
Quarter: 2006Q1

REPORT INFORMATION
  Report Type: 
  Country: None (occurrence: None)
  Receive Date: 20060322
  Receipt Date: 20060302
  Transmission Date: 20060701
  Serious: Yes (Hospitalization)
  Sender: FDA-Public Use
  Company Number: EWC050443480

PATIENT
  Age: 13 Year
  Sex: Male
  Weight: 34.5 kg

DRUGS (2)
  1. STRATTERA [Suspect]
     Indication: ATTENTION DEFICIT/HYPERACTIVITY DISORDER
     Dosage: 40 M G, DAILY (1/D)
  2. CONCERTA [Concomitant]

REACTIONS (3)
  - DIABETES MELLITUS INSULIN-DEPENDENT [None]
  - POLLAKIURIA [None]
  - THIRST [None]
